FAERS Safety Report 19750029 (Version 3)
Quarter: 2021Q3

REPORT INFORMATION
  Report Type: Report from Study
  Country: IL (occurrence: IL)
  Receive Date: 20210826
  Receipt Date: 20210921
  Transmission Date: 20211014
  Serious: Yes (Hospitalization)
  Sender: FDA-Public Use
  Company Number: IL-EISAI MEDICAL RESEARCH-EC-2021-092190

PATIENT
  Age: 77 Year
  Sex: Male
  Weight: 69 kg

DRUGS (17)
  1. PEMETREXED. [Suspect]
     Active Substance: PEMETREXED
     Route: 042
     Dates: start: 20210208, end: 20210208
  2. DEXAMETHASONE. [Concomitant]
     Active Substance: DEXAMETHASONE
     Dates: start: 20210207, end: 20210207
  3. PEMETREXED. [Suspect]
     Active Substance: PEMETREXED
     Indication: NON-SMALL CELL LUNG CANCER METASTATIC
     Route: 042
     Dates: start: 20201103, end: 20210119
  4. OMEPRAZOLE. [Concomitant]
     Active Substance: OMEPRAZOLE
     Dates: start: 20201104
  5. BETACORTEN G [Concomitant]
     Route: 061
     Dates: start: 20201209
  6. BISOPROLOL [Concomitant]
     Active Substance: BISOPROLOL
     Dates: start: 20201104
  7. LENVATINIB [Suspect]
     Active Substance: LENVATINIB
     Indication: NON-SMALL CELL LUNG CANCER METASTATIC
     Route: 048
     Dates: start: 20201103
  8. PEMBROLIZUMAB. [Suspect]
     Active Substance: PEMBROLIZUMAB
     Route: 041
     Dates: start: 20210208, end: 20210208
  9. CARBOPLATIN. [Concomitant]
     Active Substance: CARBOPLATIN
     Indication: NON-SMALL CELL LUNG CANCER METASTATIC
     Dates: start: 20201103, end: 20210119
  10. DEXAMETHASONE. [Concomitant]
     Active Substance: DEXAMETHASONE
     Dates: start: 20210208, end: 20210208
  11. PEMBROLIZUMAB. [Suspect]
     Active Substance: PEMBROLIZUMAB
     Indication: NON-SMALL CELL LUNG CANCER METASTATIC
     Route: 041
     Dates: start: 20201103, end: 20210119
  12. PEMETREXED. [Suspect]
     Active Substance: PEMETREXED
     Route: 042
     Dates: start: 20210503
  13. FOLIC ACID. [Concomitant]
     Active Substance: FOLIC ACID
     Dates: start: 20201018
  14. STATOR [ROSUVASTATIN CALCIUM] [Concomitant]
     Active Substance: ROSUVASTATIN CALCIUM
     Dates: start: 201001
  15. ENALADEX [Concomitant]
     Active Substance: ENALAPRIL MALEATE
     Dates: start: 201001
  16. APIXABAN [Concomitant]
     Active Substance: APIXABAN
     Dates: start: 201008
  17. TOZINAMERAN. [Concomitant]
     Active Substance: TOZINAMERAN
     Indication: NON-SMALL CELL LUNG CANCER METASTATIC
     Dates: start: 20210221

REACTIONS (1)
  - Cognitive disorder [Not Recovered/Not Resolved]

NARRATIVE: CASE EVENT DATE: 20210221
